FAERS Safety Report 21732144 (Version 1)
Quarter: 2022Q4

REPORT INFORMATION
  Report Type: Spontaneous
  Country: BG (occurrence: BG)
  Receive Date: 20221215
  Receipt Date: 20221215
  Transmission Date: 20230112
  Serious: Yes (Death, Hospitalization, Other)
  Sender: FDA-Public Use
  Company Number: BG-BoehringerIngelheim-2022-BI-201885

PATIENT
  Age: 74 Year
  Sex: Male

DRUGS (5)
  1. DIAZEPAM [Suspect]
     Active Substance: DIAZEPAM
     Indication: Product used for unknown indication
     Route: 065
  2. ALTEPLASE [Suspect]
     Active Substance: ALTEPLASE
     Indication: Cerebral artery thrombosis
     Dosage: UNIT DOSE: 45MG; FREQ TIME: 1DAY
     Route: 065
  3. ALTEPLASE [Suspect]
     Active Substance: ALTEPLASE
     Indication: Cerebral infarction
  4. SOPRAL [Concomitant]
     Indication: Product used for unknown indication
  5. CITICOLINE [Concomitant]
     Active Substance: CITICOLINE
     Indication: Product used for unknown indication

REACTIONS (1)
  - Angioedema [Fatal]
